FAERS Safety Report 19098463 (Version 1)
Quarter: 2021Q2

REPORT INFORMATION
  Report Type: Spontaneous
  Country: CN (occurrence: CN)
  Receive Date: 20210406
  Receipt Date: 20210406
  Transmission Date: 20210717
  Serious: Yes (Other)
  Sender: FDA-Public Use
  Company Number: CN-ASTRAZENECA-2021A224706

PATIENT
  Age: 67 Year
  Sex: Female
  Weight: 45 kg

DRUGS (2)
  1. IPRATROPIUM BROMIDE. [Concomitant]
     Active Substance: IPRATROPIUM BROMIDE
     Indication: INTERVERTEBRAL DISC DISORDER
     Dosage: 2 ML
     Route: 065
     Dates: start: 20210310, end: 20210310
  2. PULMICORT RESPULES [Suspect]
     Active Substance: BUDESONIDE
     Indication: INTERVERTEBRAL DISC DISORDER
     Route: 055
     Dates: start: 20210310, end: 20210310

REACTIONS (3)
  - Extrapyramidal disorder [Recovering/Resolving]
  - Blood pressure increased [Recovering/Resolving]
  - Dizziness [Recovering/Resolving]

NARRATIVE: CASE EVENT DATE: 20210310
